FAERS Safety Report 13385285 (Version 2)
Quarter: 2017Q2

REPORT INFORMATION
  Report Type: Spontaneous
  Country: BG (occurrence: BG)
  Receive Date: 20170329
  Receipt Date: 20170403
  Transmission Date: 20170830
  Serious: Yes (Other)
  Sender: FDA-Public Use
  Company Number: PHHY2017BG045519

PATIENT
  Age: 38 Year
  Sex: Male

DRUGS (1)
  1. TASIGNA [Suspect]
     Active Substance: NILOTINIB
     Indication: CHRONIC MYELOID LEUKAEMIA
     Dosage: 300 MG, BID
     Route: 048
     Dates: start: 201606, end: 20170310

REACTIONS (6)
  - Chronic myeloid leukaemia [Unknown]
  - Malignant neoplasm progression [Unknown]
  - Pain [Unknown]
  - Gelatinous transformation of the bone marrow [Not Recovered/Not Resolved]
  - Splenomegaly [Unknown]
  - Asthenia [Unknown]

NARRATIVE: CASE EVENT DATE: 20170202
